FAERS Safety Report 9016281 (Version 1)
Quarter: 2013Q1

REPORT INFORMATION
  Report Type: Spontaneous
  Country: JP (occurrence: JP)
  Receive Date: 20130116
  Receipt Date: 20130116
  Transmission Date: 20140127
  Serious: Yes (Hospitalization)
  Sender: FDA-Public Use
  Company Number: JP-B.I. PHARMACEUTICALS,INC./RIDGEFIELD-2013-BI-00624NB

PATIENT
  Age: 71 Year
  Sex: 0

DRUGS (6)
  1. PRADAXA [Suspect]
     Indication: ATRIAL FIBRILLATION
     Dosage: 220 MG
     Route: 048
     Dates: start: 20120329, end: 20130105
  2. AZANIN / AZATHIOPRINE [Concomitant]
     Dosage: 150 MG
     Route: 048
  3. GLIMICRON / GLICLAZIDE [Concomitant]
     Dosage: 40 MG
     Route: 048
  4. JANUVIA / SITAGLIPTIN PHOSPHATE HYDRATE [Concomitant]
     Dosage: 50 MG
     Route: 048
  5. PREDNISOLON/ PREDNISOLONE [Concomitant]
     Route: 065
  6. WARFARIN K / WARFARIN POTASSIUM [Concomitant]
     Route: 065

REACTIONS (2)
  - Cerebral infarction [Recovered/Resolved with Sequelae]
  - Drug ineffective [Unknown]
